FAERS Safety Report 14352332 (Version 1)
Quarter: 2018Q1

REPORT INFORMATION
  Report Type: Spontaneous
  Country: FR (occurrence: FR)
  Receive Date: 20180104
  Receipt Date: 20180104
  Transmission Date: 20180509
  Serious: Yes (Other)
  Sender: FDA-Public Use
  Company Number: FR-MYLANLABS-2018M1000569

PATIENT
  Age: 59 Year
  Sex: Female
  Weight: 63 kg

DRUGS (3)
  1. SIMVASTATINE MYLAN 20 MG, COMPRIM? PELLICUL? S?CABLE [Suspect]
     Active Substance: SIMVASTATIN
     Indication: HYPERCHOLESTEROLAEMIA
     Dosage: 1 DF, QD
     Route: 048
  2. ROSUVASTATINE                      /01588601/ [Suspect]
     Active Substance: ROSUVASTATIN
     Indication: HYPERCHOLESTEROLAEMIA
     Dosage: 1 DF, QD
     Route: 048
     Dates: start: 20170915, end: 20171015
  3. LOSARTAN. [Suspect]
     Active Substance: LOSARTAN
     Indication: HYPERTENSION
     Dosage: 1 DF, QD
     Route: 048

REACTIONS (11)
  - Palpitations [Not Recovered/Not Resolved]
  - Pruritus [Not Recovered/Not Resolved]
  - Tendon pain [Not Recovered/Not Resolved]
  - Memory impairment [Not Recovered/Not Resolved]
  - Myalgia [Not Recovered/Not Resolved]
  - Inflammation [Not Recovered/Not Resolved]
  - Paraesthesia [Not Recovered/Not Resolved]
  - Musculoskeletal stiffness [Not Recovered/Not Resolved]
  - Insomnia [Not Recovered/Not Resolved]
  - Pollakiuria [Not Recovered/Not Resolved]
  - Rash [Not Recovered/Not Resolved]

NARRATIVE: CASE EVENT DATE: 20170710
